FAERS Safety Report 23056719 (Version 1)
Quarter: 2023Q4

REPORT INFORMATION
  Report Type: Spontaneous
  Country: US (occurrence: US)
  Receive Date: 20231012
  Receipt Date: 20231012
  Transmission Date: 20240110
  Serious: Yes (Death, Other)
  Sender: FDA-Public Use
  Company Number: US-AMGEN-USASP2023177507

PATIENT
  Age: 22 Year
  Sex: Female

DRUGS (2)
  1. RITUXIMAB [Suspect]
     Active Substance: RITUXIMAB
     Indication: Sjogren^s syndrome
     Dosage: UNK
     Route: 065
  2. RITUXIMAB [Suspect]
     Active Substance: RITUXIMAB
     Indication: Interstitial lung disease

REACTIONS (9)
  - Ill-defined disorder [Fatal]
  - Pulmonary fibrosis [Unknown]
  - Transplant dysfunction [Unknown]
  - Hypoxia [Unknown]
  - Drug ineffective for unapproved indication [Unknown]
  - Low lung compliance [Unknown]
  - Barotrauma [Unknown]
  - Mechanical ventilation complication [Unknown]
  - Off label use [Unknown]
